FAERS Safety Report 12552442 (Version 1)
Quarter: 2016Q3

REPORT INFORMATION
  Report Type: Spontaneous
  Country: US (occurrence: US)
  Receive Date: 20160713
  Receipt Date: 20160713
  Transmission Date: 20161109
  Serious: Yes (Hospitalization)
  Sender: FDA-Public Use
  Company Number: US-IPCA LABORATORIES LIMITED-IPC201607-000565

PATIENT
  Age: 80 Year
  Sex: Female

DRUGS (6)
  1. HYDROCHLOROTHIAZIDE. [Suspect]
     Active Substance: HYDROCHLOROTHIAZIDE
  2. AMITRIPTYLINE [Suspect]
     Active Substance: AMITRIPTYLINE
  3. MELOXICAM. [Suspect]
     Active Substance: MELOXICAM
  4. OLMESARTAN MEDOXOMIL. [Suspect]
     Active Substance: OLMESARTAN MEDOXOMIL
  5. LISINOPRIL. [Suspect]
     Active Substance: LISINOPRIL
  6. OXYBUTYNIN [Suspect]
     Active Substance: OXYBUTYNIN

REACTIONS (4)
  - Psychotic disorder [Recovered/Resolved]
  - Acute kidney injury [Recovering/Resolving]
  - Urinary retention [Recovered/Resolved]
  - Hypertension [Recovered/Resolved]
